FAERS Safety Report 6557910-9 (Version None)
Quarter: 2010Q1

REPORT INFORMATION
  Report Type: 
  Country: None (occurrence: None)
  Receive Date: 20100127
  Receipt Date: 20100127
  Transmission Date: 20100710
  Serious: Yes (Hospitalization)
  Sender: FDA-Public Use
  Company Number: None

PATIENT
  Age: 30 Year
  Sex: Female
  Weight: 66 kg

DRUGS (5)
  1. TYLENOL PM [Suspect]
     Indication: INSOMNIA
     Dosage: 15-18 TABLETS W/ IN 6 HRS PO RECENT INCEASED AMOUNT
     Route: 048
  2. VICODIN [Suspect]
     Indication: PAIN
     Dosage: 3-4 (325MG) DAILY PO RECCENT
     Route: 048
  3. ORAL CONTRACPTION [Concomitant]
  4. ANAFRAIL [Concomitant]
  5. FLOMAX [Concomitant]

REACTIONS (5)
  - ABDOMINAL PAIN UPPER [None]
  - ACCIDENTAL OVERDOSE [None]
  - ALCOHOL ABUSE [None]
  - HEPATOTOXICITY [None]
  - PROTHROMBIN TIME PROLONGED [None]
